FAERS Safety Report 6028871-6 (Version None)
Quarter: 2008Q4

REPORT INFORMATION
  Report Type: 
  Country: None (occurrence: None)
  Receive Date: 20081231
  Receipt Date: 20081218
  Transmission Date: 20090506
  Serious: Yes (Other)
  Sender: FDA-Public Use
  Company Number: 2008S1022590

PATIENT
  Age: 53 Year
  Sex: Female

DRUGS (14)
  1. DIAZEPAM (DIAZEPAM) (20 MG) [Suspect]
     Indication: DRUG USE FOR UNKNOWN INDICATION
     Dosage: 20 MG/DAY; DAILY; ORAL
     Route: 048
     Dates: start: 20080129, end: 20080326
  2. ZOPICLONE (ZOPICLONE) [Suspect]
     Indication: DRUG USE FOR UNKNOWN INDICATION
     Dosage: 7.5 MG; DAILY; ORAL
     Route: 048
     Dates: start: 20080126
  3. AKINETON /00079502/ (BIPERIDEN HYDROCHLORIDE) (6 MG) [Suspect]
     Indication: DRUG USE FOR UNKNOWN INDICATION
     Dosage: 6 MG; DAILY; ORAL
     Route: 048
     Dates: start: 20080206
  4. HALDOL [Suspect]
     Indication: DRUG USE FOR UNKNOWN INDICATION
     Dosage: 10 MG; DAILY; ORAL, 15 MG; DAILY; ORAL
     Route: 048
     Dates: start: 20080128, end: 20080212
  5. HALDOL [Suspect]
     Indication: DRUG USE FOR UNKNOWN INDICATION
     Dosage: 10 MG; DAILY; ORAL, 15 MG; DAILY; ORAL
     Route: 048
     Dates: start: 20080213, end: 20080215
  6. HALDOL [Suspect]
     Indication: DRUG USE FOR UNKNOWN INDICATION
     Dosage: 10 MG; DAILY; ORAL, 15 MG; DAILY; ORAL
     Route: 048
     Dates: start: 20080216, end: 20080222
  7. ORFIRIL /00228501/ (VALPROIC ACID) [Suspect]
     Indication: DRUG USE FOR UNKNOWN INDICATION
     Dosage: SEE IMAGE
     Route: 048
     Dates: start: 20080209, end: 20080213
  8. ORFIRIL /00228501/ (VALPROIC ACID) [Suspect]
     Indication: DRUG USE FOR UNKNOWN INDICATION
     Dosage: SEE IMAGE
     Route: 048
     Dates: start: 20080214, end: 20080215
  9. ORFIRIL /00228501/ (VALPROIC ACID) [Suspect]
     Indication: DRUG USE FOR UNKNOWN INDICATION
     Dosage: SEE IMAGE
     Route: 048
     Dates: start: 20080216, end: 20080220
  10. ORFIRIL /00228501/ (VALPROIC ACID) [Suspect]
     Indication: DRUG USE FOR UNKNOWN INDICATION
     Dosage: SEE IMAGE
     Route: 048
     Dates: start: 20080221, end: 20080325
  11. ORFIRIL /00228501/ (VALPROIC ACID) [Suspect]
     Indication: DRUG USE FOR UNKNOWN INDICATION
     Dosage: SEE IMAGE
     Route: 048
     Dates: start: 20080208
  12. RISPERDAL [Suspect]
     Indication: DRUG USE FOR UNKNOWN INDICATION
     Dosage: 2 MG; DAILY; ORAL, 6 MG; DAILY; ORAL, 8 MG; DAILY; ORAL
     Route: 048
     Dates: start: 20080213, end: 20080220
  13. RISPERDAL [Suspect]
     Indication: DRUG USE FOR UNKNOWN INDICATION
     Dosage: 2 MG; DAILY; ORAL, 6 MG; DAILY; ORAL, 8 MG; DAILY; ORAL
     Route: 048
     Dates: start: 20080221, end: 20080225
  14. RISPERDAL [Suspect]
     Indication: DRUG USE FOR UNKNOWN INDICATION
     Dosage: 2 MG; DAILY; ORAL, 6 MG; DAILY; ORAL, 8 MG; DAILY; ORAL
     Route: 048
     Dates: start: 20080226, end: 20080704

REACTIONS (1)
  - PLEUROTHOTONUS [None]
